FAERS Safety Report 7251446-8 (Version None)
Quarter: 2011Q1

REPORT INFORMATION
  Report Type: 
  Country: None (occurrence: None)
  Receive Date: 20110128
  Receipt Date: 20110117
  Transmission Date: 20110831
  Serious: Yes (Other)
  Sender: FDA-Public Use
  Company Number: PHHY2011IL04305

PATIENT
  Age: 63 Year
  Sex: Male

DRUGS (2)
  1. TASIGNA [Suspect]
     Dosage: 600 MG, UNK
     Route: 048
  2. TASIGNA [Suspect]
     Indication: CHRONIC MYELOID LEUKAEMIA
     Dosage: 400 MG, UNK
     Route: 048
     Dates: start: 20101117

REACTIONS (4)
  - DIABETES MELLITUS INADEQUATE CONTROL [None]
  - PLEURAL EFFUSION [None]
  - HYPERTENSION [None]
  - ELECTROCARDIOGRAM QT PROLONGED [None]
